FAERS Safety Report 8782225 (Version 1)
Quarter: 2012Q4

REPORT INFORMATION
  Report Type: Report from Study
  Country: US (occurrence: US)
  Receive Date: 20120913
  Receipt Date: 20120913
  Transmission Date: 20130627
  Serious: No
  Sender: FDA-Public Use
  Company Number: US-VERTEX PHARMACEUTICAL INC.-AE-2012-010562

PATIENT
  Age: 47 Year
  Sex: Female
  Weight: 108.9 kg

DRUGS (7)
  1. INCIVEK [Suspect]
     Indication: HEPATITIS C
     Route: 048
     Dates: start: 2012, end: 20120712
  2. RIBASPHERE [Concomitant]
     Indication: HEPATITIS C
     Route: 048
     Dates: start: 2012, end: 20120712
  3. PEGASYS [Concomitant]
     Indication: HEPATITIS C
     Route: 058
     Dates: start: 2012, end: 20120712
  4. LISINOPRIL [Concomitant]
  5. PAXIL [Concomitant]
  6. LANTUS [Concomitant]
     Route: 058
  7. METFORMIN HCL [Concomitant]
     Route: 048

REACTIONS (1)
  - Platelet count decreased [Not Recovered/Not Resolved]
